FAERS Safety Report 7769815-6 (Version None)
Quarter: 2011Q3

REPORT INFORMATION
  Report Type: 
  Country: None (occurrence: None)
  Receive Date: 20110922
  Receipt Date: 20100809
  Transmission Date: 20111222
  Serious: No
  Sender: FDA-Public Use
  Company Number: US-ASTRAZENECA-2010SE37129

PATIENT
  Age: 49 Year
  Sex: Female
  Weight: 78.5 kg

DRUGS (2)
  1. SEROQUEL XR [Suspect]
     Indication: SLEEP DISORDER
     Route: 048
  2. LEXAPRO [Concomitant]

REACTIONS (2)
  - PALPITATIONS [None]
  - MUSCLE SPASMS [None]
